FAERS Safety Report 13968726 (Version 1)
Quarter: 2017Q3

REPORT INFORMATION
  Report Type: Spontaneous
  Country: DE (occurrence: DE)
  Receive Date: 20170914
  Receipt Date: 20170914
  Transmission Date: 20171128
  Serious: Yes (Other)
  Sender: FDA-Public Use
  Company Number: GXKR2017DE004570

PATIENT
  Sex: Male
  Weight: 68 kg

DRUGS (11)
  1. PANTOZOL [Concomitant]
     Active Substance: PANTOPRAZOLE SODIUM
     Indication: PRODUCT USED FOR UNKNOWN INDICATION
     Dosage: 40 MG, QD
     Route: 048
     Dates: start: 20170826, end: 20170827
  2. TAVEGIL [Concomitant]
     Active Substance: CLEMASTINE FUMARATE
     Indication: PRODUCT USED FOR UNKNOWN INDICATION
     Dosage: 1 DF, ONCE/SINGLE
     Route: 041
     Dates: start: 20170825, end: 20170825
  3. DEXA [Concomitant]
     Active Substance: DEXAMETHASONE
     Dosage: 8 MG, QD
     Route: 048
     Dates: start: 20170826, end: 20170827
  4. SOSTRIL [Concomitant]
     Active Substance: RANITIDINE HYDROCHLORIDE
     Indication: PRODUCT USED FOR UNKNOWN INDICATION
     Dosage: 1 DF, ONCE/SINGLE
     Route: 041
     Dates: start: 20170825, end: 20170825
  5. GLUCOS B.BRAUN [Concomitant]
     Indication: INFUSION
     Dosage: 500 ML, ONCE/SINGLE
     Route: 041
     Dates: start: 20170825, end: 20170825
  6. NEOTAXAN [Suspect]
     Active Substance: PACLITAXEL
     Indication: METASTATIC MALIGNANT MELANOMA
     Dosage: 408 MG, QD
     Route: 041
     Dates: start: 20170825, end: 20170825
  7. NACL B.BRAUN [Concomitant]
     Indication: INFUSION
     Dosage: 500 ML, ONCE/SINGLE
     Route: 041
     Dates: start: 20170825, end: 20170825
  8. CARBOPLATIN TEVA [Suspect]
     Active Substance: CARBOPLATIN
     Indication: METASTATIC MALIGNANT MELANOMA
     Dosage: 860 MG, QD
     Route: 041
     Dates: start: 20170825, end: 20170825
  9. DEXA [Concomitant]
     Active Substance: DEXAMETHASONE
     Dosage: 20 MG, ONCE/SINGLE
     Route: 041
     Dates: start: 20170825, end: 20170825
  10. KEVATRIL [Concomitant]
     Active Substance: GRANISETRON HYDROCHLORIDE
     Indication: PRODUCT USED FOR UNKNOWN INDICATION
     Dosage: 2 MG, ONCE/SINGLE
     Route: 042
     Dates: start: 20170825, end: 20170825
  11. DEXA [Concomitant]
     Active Substance: DEXAMETHASONE
     Indication: PRODUCT USED FOR UNKNOWN INDICATION
     Dosage: 20 MG, ONCE/SINGLE
     Route: 048
     Dates: start: 20170824, end: 20170824

REACTIONS (2)
  - Ischaemic cerebral infarction [Not Recovered/Not Resolved]
  - Generalised tonic-clonic seizure [Unknown]

NARRATIVE: CASE EVENT DATE: 20170827
